FAERS Safety Report 8026161-3 (Version None)
Quarter: 2012Q1

REPORT INFORMATION
  Report Type: 
  Country: None (occurrence: None)
  Receive Date: 20120105
  Receipt Date: 20110207
  Transmission Date: 20120608
  Serious: No
  Sender: FDA-Public Use
  Company Number: US-ABBOTT-11P-163-0704206-00

PATIENT
  Sex: Female
  Weight: 51.756 kg

DRUGS (4)
  1. ORTHO-CEPT [Concomitant]
     Indication: CONTRACEPTION
  2. SYNTHROID [Suspect]
  3. SYNTHROID [Suspect]
     Indication: HYPOTHYROIDISM
     Route: 048
     Dates: start: 19970101, end: 20101219
  4. SYNTHROID [Suspect]
     Indication: HYPOTHYROIDISM
     Dates: start: 20101219

REACTIONS (5)
  - COELIAC DISEASE [None]
  - MUSCLE SPASMS [None]
  - DIARRHOEA [None]
  - MALAISE [None]
  - THYROID FUNCTION TEST ABNORMAL [None]
